FAERS Safety Report 9521743 (Version 2)
Quarter: 2013Q3

REPORT INFORMATION
  Report Type: Report from Study
  Country: DE (occurrence: DE)
  Receive Date: 20130913
  Receipt Date: 20130913
  Transmission Date: 20140515
  Serious: Yes (Hospitalization)
  Sender: FDA-Public Use
  Company Number: PHHY2013DE023191

PATIENT
  Sex: Female
  Weight: 105 kg

DRUGS (6)
  1. LAF237 [Suspect]
     Indication: TYPE 2 DIABETES MELLITUS
     Dosage: 100 MG, QD
     Dates: start: 20120904
  2. METOPROLOL [Concomitant]
     Indication: SECONDARY HYPERTENSION
     Dosage: 95 MG/ DAY
     Dates: start: 20101206
  3. AMLODIPINE [Concomitant]
     Indication: SECONDARY HYPERTENSION
     Dosage: 25 MG/ DAY
     Dates: start: 20101025
  4. EUTHYROX [Concomitant]
     Indication: HYPOTHYROIDISM
     Dosage: 150 UG PER DAY
     Dates: start: 20130109
  5. EXFORGE HCT [Concomitant]
     Indication: HYPERTENSION
     Dosage: 1 DF (5MG AMLO+ 160MG VALS+ 25MG HCT), PER DAY
     Dates: start: 20100308
  6. LYRICA [Concomitant]
     Indication: POLYNEUROPATHY
     Dosage: 150 MG, PER DAY
     Dates: start: 20120904

REACTIONS (1)
  - Adenocarcinoma [Recovered/Resolved]
